FAERS Safety Report 13849041 (Version 1)
Quarter: 2017Q3

REPORT INFORMATION
  Report Type: Spontaneous
  Country: US (occurrence: US)
  Receive Date: 20170809
  Receipt Date: 20170809
  Transmission Date: 20171127
  Serious: Yes (Other)
  Sender: FDA-Public Use
  Company Number: None

PATIENT
  Age: 18 Year
  Sex: Female
  Weight: 49.5 kg

DRUGS (9)
  1. VITAMIN D [Concomitant]
     Active Substance: CHOLECALCIFEROL
  2. IRON [Concomitant]
     Active Substance: IRON
  3. PERCOCET [Concomitant]
     Active Substance: ACETAMINOPHEN\OXYCODONE HYDROCHLORIDE
  4. ZOFRAN [Concomitant]
     Active Substance: ONDANSETRON HYDROCHLORIDE
  5. AMITRIPTYLINE [Concomitant]
     Active Substance: AMITRIPTYLINE
  6. DEPO-PROVERA [Suspect]
     Active Substance: MEDROXYPROGESTERONE ACETATE
     Indication: MENORRHAGIA
     Dosage: OTHER FREQUENCY:ONCE EVERY 3 MONTH;?
     Route: 058
     Dates: start: 20170322, end: 20170730
  7. PREMARIN [Concomitant]
     Active Substance: ESTROGENS, CONJUGATED
  8. NAPROXEN. [Concomitant]
     Active Substance: NAPROXEN
  9. PREVACID [Concomitant]
     Active Substance: LANSOPRAZOLE

REACTIONS (4)
  - Haemorrhage [None]
  - Haematocrit decreased [None]
  - Oligomenorrhoea [None]
  - Haemoglobin decreased [None]

NARRATIVE: CASE EVENT DATE: 20170506
